FAERS Safety Report 7851945-1 (Version None)
Quarter: 2011Q4

REPORT INFORMATION
  Report Type: 
  Country: None (occurrence: None)
  Receive Date: 20111026
  Receipt Date: 20111013
  Transmission Date: 20120403
  Serious: Yes (Hospitalization)
  Sender: FDA-Public Use
  Company Number: GB-ELI_LILLY_AND_COMPANY-GB201110002945

PATIENT
  Sex: Male

DRUGS (2)
  1. OLANZAPINE [Suspect]
     Dosage: 15 MG, UNK
  2. OLANZAPINE [Suspect]
     Dosage: 15 MG, UNK
     Dates: start: 20111013

REACTIONS (1)
  - COUNTERFEIT DRUG ADMINISTERED [None]
